FAERS Safety Report 8270737-5 (Version None)
Quarter: 2012Q2

REPORT INFORMATION
  Report Type: 
  Country: None (occurrence: None)
  Receive Date: 20120410
  Receipt Date: 20120402
  Transmission Date: 20120825
  Serious: Yes (Hospitalization, Other)
  Sender: FDA-Public Use
  Company Number: US-BAYER-2011-034369

PATIENT
  Age: 28 Year
  Sex: Female
  Weight: 72.562 kg

DRUGS (10)
  1. YASMIN [Suspect]
     Indication: PREMENSTRUAL SYNDROME
  2. NAPROXEN (ALEVE) [Concomitant]
     Indication: HEADACHE
     Dosage: UNK UNK, OW
     Dates: start: 20060712
  3. TYLENOL (CAPLET) [Concomitant]
     Indication: HEADACHE
     Dosage: UNK UNK, BIW
     Dates: start: 20060711, end: 20060713
  4. LORTAB [Concomitant]
     Indication: PAIN
     Dosage: 7.5 MG, UNK
     Dates: start: 19990801
  5. ZOFRAN [Concomitant]
  6. YASMIN [Suspect]
     Indication: ACNE
  7. MIDRIN [Concomitant]
     Indication: MIGRAINE
     Dosage: UNK UNK, PRN
     Dates: start: 19990101, end: 20060101
  8. ZOLOFT [Concomitant]
     Dosage: UNK
     Dates: end: 20060601
  9. YASMIN [Suspect]
     Indication: CONTRACEPTION
     Dosage: UNK
     Dates: start: 20050901, end: 20060701
  10. SIMPLY SLEEP [Concomitant]
     Indication: SLEEP DISORDER THERAPY
     Dosage: UNK UNK, BIW
     Dates: start: 20060714, end: 20060715

REACTIONS (10)
  - PULMONARY EMBOLISM [None]
  - DYSPNOEA [None]
  - PAIN [None]
  - GENERAL PHYSICAL HEALTH DETERIORATION [None]
  - CHOLECYSTITIS CHRONIC [None]
  - CHOLELITHIASIS [None]
  - DEPRESSION [None]
  - ANXIETY [None]
  - EMOTIONAL DISTRESS [None]
  - INJURY [None]
